FAERS Safety Report 14328874 (Version 2)
Quarter: 2018Q2

REPORT INFORMATION
  Report Type: Spontaneous
  Country: US (occurrence: US)
  Receive Date: 20171227
  Receipt Date: 20180608
  Transmission Date: 20180711
  Serious: No
  Sender: FDA-Public Use
  Company Number: US-PFIZER INC-2017548342

PATIENT
  Age: 51 Year
  Sex: Female

DRUGS (6)
  1. DOCETAXEL. [Suspect]
     Active Substance: DOCETAXEL
     Dosage: 176 TO 178 MG EVERY THREE WEEKS FOR FOUR CYCLES
     Dates: start: 20120118, end: 20120321
  2. TAXOTERE [Suspect]
     Active Substance: DOCETAXEL
     Dosage: UNK
     Dates: start: 20120118, end: 20120321
  3. DOCETAXEL. [Suspect]
     Active Substance: DOCETAXEL
     Dosage: 176 TO 178 MG EVERY THREE WEEKS FOR FOUR CYCLES
     Dates: start: 20120118, end: 20120321
  4. CYTOXAN [Concomitant]
     Active Substance: CYCLOPHOSPHAMIDE
     Indication: CHEMOTHERAPY
     Dosage: 1420 TO 1422 MG, UNK
  5. DOCEFREZ [Suspect]
     Active Substance: DOCETAXEL ANHYDROUS
     Dosage: UNK
     Dates: start: 20120118, end: 20120321
  6. NEOSAR [Concomitant]
     Active Substance: CYCLOPHOSPHAMIDE
     Indication: CHEMOTHERAPY
     Dosage: UNK

REACTIONS (7)
  - Hair disorder [Not Recovered/Not Resolved]
  - Hair colour changes [Not Recovered/Not Resolved]
  - Alopecia [Not Recovered/Not Resolved]
  - Hair texture abnormal [Not Recovered/Not Resolved]
  - Madarosis [Not Recovered/Not Resolved]
  - Amnesia [Unknown]
  - Anxiety [Unknown]

NARRATIVE: CASE EVENT DATE: 201202
